FAERS Safety Report 9636135 (Version 2)
Quarter: 2013Q4

REPORT INFORMATION
  Report Type: Report from Study
  Country: AU (occurrence: AU)
  Receive Date: 20131021
  Receipt Date: 20131021
  Transmission Date: 20140711
  Serious: Yes (Hospitalization)
  Sender: FDA-Public Use
  Company Number: AU-BAYER-2013-112693

PATIENT
  Age: 44 Year
  Sex: Male
  Weight: 80.1 kg

DRUGS (4)
  1. REGORAFENIB [Suspect]
     Indication: COLORECTAL CANCER METASTATIC
     Dosage: 160 MG, QD
     Route: 048
     Dates: start: 20130722, end: 20130809
  2. METOCLOPRAMIDE [Concomitant]
     Indication: NAUSEA
     Dosage: 10 MG, QID (PRN)
     Dates: start: 2011
  3. OXYCONTIN [Concomitant]
     Indication: PAIN
     Dosage: 30 MG, BID
     Route: 048
     Dates: start: 2012
  4. ENDONE [Concomitant]
     Indication: PAIN
     Dosage: 10 MG, QID (PRN)
     Route: 048

REACTIONS (3)
  - Rash pustular [None]
  - Subcutaneous abscess [Recovered/Resolved with Sequelae]
  - Staphylococcal infection [Recovered/Resolved]
